FAERS Safety Report 9246211 (Version 1)
Quarter: 2013Q2

REPORT INFORMATION
  Report Type: Spontaneous
  Country: US (occurrence: US)
  Receive Date: 20130422
  Receipt Date: 20130422
  Transmission Date: 20140414
  Serious: Yes (Death, Hospitalization, Other)
  Sender: FDA-Public Use
  Company Number: US-PFIZER INC-2013119235

PATIENT
  Age: 39 Year
  Sex: Male

DRUGS (4)
  1. EPINEPHRINE [Suspect]
     Indication: HYPERSENSITIVITY
     Dosage: 0.5 MG, SINGLE
     Route: 058
  2. EPINEPHRINE [Suspect]
     Indication: ANAPHYLACTIC REACTION
  3. SELDANE [Concomitant]
     Indication: COUGH
     Dosage: UNK
  4. PROMETHAZINE W/CODEINE [Concomitant]
     Indication: COUGH
     Dosage: UNK

REACTIONS (5)
  - Subarachnoid haemorrhage [Fatal]
  - Cardio-respiratory arrest [Unknown]
  - Intracranial pressure increased [Unknown]
  - Hypertension [Unknown]
  - Bradycardia [Unknown]
